FAERS Safety Report 21670487 (Version 1)
Quarter: 2022Q4

REPORT INFORMATION
  Report Type: Report from Study
  Country: US (occurrence: US)
  Receive Date: 20221201
  Receipt Date: 20221201
  Transmission Date: 20230113
  Serious: No
  Sender: FDA-Public Use
  Company Number: US-ABBVIE-4173330

PATIENT
  Sex: Female

DRUGS (3)
  1. HUMIRA [Suspect]
     Active Substance: ADALIMUMAB
     Indication: Hidradenitis
     Dosage: DAY 29, FORM STRENGTH: 40 MILLIGRAM.
     Route: 058
     Dates: start: 20211210
  2. HUMIRA [Suspect]
     Active Substance: ADALIMUMAB
     Dosage: DAY 1, ONE IN ONE DAY, FORM STRENGTH: 40 MILLIGRAM.
     Route: 058
     Dates: start: 20211111
  3. HUMIRA [Suspect]
     Active Substance: ADALIMUMAB
     Dosage: ONE IN ONE DAY, FORM STRENGTH: 40 MILLIGRAM. DAY 15.
     Route: 058
     Dates: start: 20211126

REACTIONS (3)
  - Product dispensing error [Unknown]
  - Hidradenitis [Recovering/Resolving]
  - Loss of personal independence in daily activities [Unknown]
